APPROVED DRUG PRODUCT: ATROPINE SULFATE
Active Ingredient: ATROPINE SULFATE
Strength: 1%
Dosage Form/Route: SOLUTION/DROPS;OPHTHALMIC
Application: A215618 | Product #001 | TE Code: AT1
Applicant: SOMERSET THERAPEUTICS LLC
Approved: Jul 1, 2024 | RLD: No | RS: No | Type: RX